FAERS Safety Report 11654835 (Version 1)
Quarter: 2015Q4

REPORT INFORMATION
  Report Type: Spontaneous
  Country: US (occurrence: US)
  Receive Date: 20151023
  Receipt Date: 20151023
  Transmission Date: 20160304
  Serious: No
  Sender: FDA-Public Use
  Company Number: US-ASTRAZENECA-2015SE99294

PATIENT
  Sex: Female
  Weight: 70.3 kg

DRUGS (1)
  1. BYDUREON [Suspect]
     Active Substance: EXENATIDE
     Dosage: 2
     Route: 065

REACTIONS (3)
  - Underdose [Unknown]
  - Product quality issue [Unknown]
  - Injection site pain [Unknown]
